FAERS Safety Report 10021474 (Version 1)
Quarter: 2014Q1

REPORT INFORMATION
  Report Type: Spontaneous
  Country: US (occurrence: None)
  Receive Date: 20140318
  Receipt Date: 20140318
  Transmission Date: 20141002
  Serious: Yes (Other)
  Sender: FDA-Public Use
  Company Number: None

PATIENT
  Age: 40 Year
  Sex: Female
  Weight: 88.45 kg

DRUGS (2)
  1. DULOXETINE [Suspect]
  2. ALPRAZOLAM [Concomitant]

REACTIONS (5)
  - Product substitution issue [None]
  - Drug withdrawal syndrome [None]
  - Nausea [None]
  - Dizziness [None]
  - Paraesthesia [None]
